FAERS Safety Report 14449055 (Version 4)
Quarter: 2018Q1

REPORT INFORMATION
  Report Type: Spontaneous
  Country: US (occurrence: US)
  Receive Date: 20180126
  Receipt Date: 20180220
  Transmission Date: 20180509
  Serious: Yes (Other)
  Sender: FDA-Public Use
  Company Number: US-GLAXOSMITHKLINE-US2018GSK014313

PATIENT
  Sex: Male

DRUGS (1)
  1. VENTOLIN HFA [Suspect]
     Active Substance: ALBUTEROL SULFATE
     Indication: ASTHMA
     Dosage: UNK UNK, PRN (1-2 PUFFS)
     Route: 055
     Dates: start: 20171204

REACTIONS (6)
  - Resuscitation [Unknown]
  - Anxiety [Unknown]
  - Cyanosis [Unknown]
  - Product quality issue [Unknown]
  - Foreign body in respiratory tract [Unknown]
  - Dyspnoea [Unknown]
